FAERS Safety Report 17069249 (Version 2)
Quarter: 2019Q4

REPORT INFORMATION
  Report Type: Spontaneous
  Country: US (occurrence: US)
  Receive Date: 20191125
  Receipt Date: 20191220
  Transmission Date: 20200122
  Serious: Yes (Other)
  Sender: FDA-Public Use
  Company Number: US-BEH-2019109639

PATIENT
  Sex: Female

DRUGS (4)
  1. BERINERT [Suspect]
     Active Substance: HUMAN C1-ESTERASE INHIBITOR
     Indication: PROPHYLAXIS
  2. BERINERT [Suspect]
     Active Substance: HUMAN C1-ESTERASE INHIBITOR
     Indication: PROPHYLAXIS
  3. BERINERT [Suspect]
     Active Substance: HUMAN C1-ESTERASE INHIBITOR
     Indication: HEREDITARY ANGIOEDEMA
     Dosage: 1500 INTERNATIONAL UNIT, BIW (EVERY THREE DAYS)
     Route: 042
     Dates: start: 2017
  4. BERINERT [Suspect]
     Active Substance: HUMAN C1-ESTERASE INHIBITOR
     Indication: HEREDITARY ANGIOEDEMA
     Dosage: 1500 INTERNATIONAL UNIT, BIW (EVERY THREE DAYS)
     Route: 042
     Dates: start: 2017

REACTIONS (7)
  - Product use in unapproved indication [Unknown]
  - No adverse event [Unknown]
  - Poor venous access [Unknown]
  - Hereditary angioedema [Unknown]
  - Treatment noncompliance [Unknown]
  - Therapy cessation [Unknown]
  - Product use complaint [Unknown]
